FAERS Safety Report 13165245 (Version 2)
Quarter: 2017Q3

REPORT INFORMATION
  Report Type: Spontaneous
  Country: US (occurrence: US)
  Receive Date: 20170131
  Receipt Date: 20170706
  Transmission Date: 20171127
  Serious: Yes (Other)
  Sender: FDA-Public Use
  Company Number: US-ROCHE-1885521

PATIENT
  Age: 74 Year
  Sex: Female
  Weight: 55.39 kg

DRUGS (3)
  1. HERCEPTIN [Suspect]
     Active Substance: TRASTUZUMAB
     Dosage: ONGOING
     Route: 065
     Dates: start: 20161216
  2. HERCEPTIN [Suspect]
     Active Substance: TRASTUZUMAB
     Dosage: ONE TIME LOADING DOSE
     Route: 065
     Dates: start: 20161209, end: 20161209
  3. HERCEPTIN [Suspect]
     Active Substance: TRASTUZUMAB
     Indication: HER-2 POSITIVE BREAST CANCER
     Dosage: NO
     Route: 065
     Dates: start: 201503, end: 201505

REACTIONS (3)
  - Liver disorder [Not Recovered/Not Resolved]
  - Pulmonary hypertension [Unknown]
  - Hepatic steatosis [Unknown]

NARRATIVE: CASE EVENT DATE: 20160210
